FAERS Safety Report 9915545 (Version 1)
Quarter: 2014Q1

REPORT INFORMATION
  Report Type: Spontaneous
  Country: US (occurrence: US)
  Receive Date: 20140221
  Receipt Date: 20140221
  Transmission Date: 20141002
  Serious: No
  Sender: FDA-Public Use
  Company Number: US-009507513-1402USA009620

PATIENT
  Sex: 0

DRUGS (2)
  1. ZOCOR [Suspect]
     Dosage: UNK
     Route: 048
     Dates: start: 1997
  2. ZOCOR [Suspect]
     Dosage: UNK
     Route: 048
     Dates: start: 2011

REACTIONS (4)
  - Adverse event [Unknown]
  - Pain in extremity [Unknown]
  - Diabetic neuropathy [Recovering/Resolving]
  - Diabetes mellitus [Unknown]
